FAERS Safety Report 9068679 (Version 3)
Quarter: 2013Q1

REPORT INFORMATION
  Report Type: Spontaneous
  Country: JP (occurrence: None)
  Receive Date: 20130122
  Receipt Date: 20130222
  Transmission Date: 20140127
  Serious: No
  Sender: FDA-Public Use
  Company Number: SPI201300006

PATIENT
  Age: 64 Year
  Sex: Female

DRUGS (2)
  1. AMITIZA [Suspect]
     Indication: CONSTIPATION
     Route: 048
     Dates: start: 20130108, end: 20130108
  2. CRESTOR [Suspect]
     Route: 048

REACTIONS (3)
  - Dyspnoea [None]
  - Chest discomfort [None]
  - Cough [None]
